FAERS Safety Report 20898498 (Version 1)
Quarter: 2022Q2

REPORT INFORMATION
  Report Type: Spontaneous
  Country: US (occurrence: US)
  Receive Date: 20220601
  Receipt Date: 20220601
  Transmission Date: 20220721
  Serious: No
  Sender: FDA-Public Use
  Company Number: US-drreddys-SPO/USA/22/0150327

PATIENT
  Age: 17 Year

DRUGS (1)
  1. ACCUTANE [Suspect]
     Active Substance: ISOTRETINOIN
     Indication: Product used for unknown indication
     Dosage: RMA ISSUE DATE: 15 FEBRUARY 2022 10:55:24 AM, 11 MARCH 2022 02:22:11 PM, 14 APRIL 2022 11:49:26 AM

REACTIONS (3)
  - Arthralgia [Unknown]
  - Myalgia [Unknown]
  - Back pain [Unknown]
